FAERS Safety Report 11043611 (Version 1)
Quarter: 2015Q2

REPORT INFORMATION
  Report Type: Spontaneous
  Country: US (occurrence: None)
  Receive Date: 20150416
  Receipt Date: 20150416
  Transmission Date: 20150821
  Serious: Yes (Other)
  Sender: FDA-Public Use
  Company Number: None

PATIENT
  Age: 36 Year
  Sex: Female
  Weight: 49.9 kg

DRUGS (7)
  1. KOLONIPIN [Concomitant]
  2. ESTROGEL [Suspect]
     Active Substance: ESTRADIOL
     Indication: HOT FLUSH
     Dosage: 1 PUMP 1 TIME A DAY  ONCE DAILY  APPLIED TO A SURFACE, USUALLY THE SKIN?4 HOURS AND 15 MINUTES
     Route: 061
  3. D3 [Concomitant]
     Active Substance: 25-HYDROXYCHOLECALCIFEROL, 5-TRANS-
  4. NATURAL STRESS RELIEF MED [Concomitant]
  5. VITAMIN B12 [Concomitant]
     Active Substance: CYANOCOBALAMIN
  6. ESTROGEL [Suspect]
     Active Substance: ESTRADIOL
     Indication: PREMENSTRUAL SYNDROME
     Dosage: 1 PUMP 1 TIME A DAY  ONCE DAILY  APPLIED TO A SURFACE, USUALLY THE SKIN?4 HOURS AND 15 MINUTES
     Route: 061
  7. MAGNIZUM [Concomitant]

REACTIONS (9)
  - Paraesthesia [None]
  - Muscle twitching [None]
  - Dry mouth [None]
  - Confusional state [None]
  - Syncope [None]
  - Hyperhidrosis [None]
  - Nausea [None]
  - Dizziness [None]
  - Tremor [None]

NARRATIVE: CASE EVENT DATE: 20150415
